FAERS Safety Report 11539221 (Version 1)
Quarter: 2015Q3

REPORT INFORMATION
  Report Type: Spontaneous
  Country: US (occurrence: None)
  Receive Date: 20150922
  Receipt Date: 20150922
  Transmission Date: 20151125
  Serious: Yes (Other)
  Sender: FDA-Public Use
  Company Number: None

PATIENT
  Age: 54 Year
  Sex: Female
  Weight: 48.99 kg

DRUGS (3)
  1. NASOCORT [Suspect]
     Active Substance: BUDESONIDE
     Indication: SINUSITIS
     Dosage: 1 SPRAY ONCE DAILY
     Route: 045
     Dates: start: 20150601, end: 20150630
  2. MULTIVITAMIN [Concomitant]
     Active Substance: VITAMINS
  3. NASOCORT [Suspect]
     Active Substance: BUDESONIDE
     Indication: MULTIPLE ALLERGIES
     Dosage: 1 SPRAY ONCE DAILY
     Route: 045
     Dates: start: 20150601, end: 20150630

REACTIONS (2)
  - Anosmia [None]
  - Ageusia [None]

NARRATIVE: CASE EVENT DATE: 20150617
